FAERS Safety Report 10242471 (Version 2)
Quarter: 2014Q3

REPORT INFORMATION
  Report Type: Spontaneous
  Country: US (occurrence: US)
  Receive Date: 20140617
  Receipt Date: 20140731
  Transmission Date: 20150326
  Serious: Yes (Hospitalization, Other)
  Sender: FDA-Public Use
  Company Number: US-PFIZER INC-2014163715

PATIENT
  Sex: Female

DRUGS (1)
  1. CALAN [Suspect]
     Active Substance: VERAPAMIL HYDROCHLORIDE
     Dosage: 80 MG, UNK

REACTIONS (3)
  - Atrial fibrillation [Unknown]
  - Lung carcinoma cell type unspecified stage IV [Unknown]
  - Dyspnoea [Unknown]
